FAERS Safety Report 16689861 (Version 7)
Quarter: 2019Q3

REPORT INFORMATION
  Report Type: Report from Study
  Country: US (occurrence: US)
  Receive Date: 20190809
  Receipt Date: 20190916
  Transmission Date: 20191004
  Serious: Yes (Life-Threatening, Hospitalization, Other)
  Sender: FDA-Public Use
  Company Number: US-GILEAD-2019-0422723

PATIENT
  Age: 69 Year
  Sex: Female
  Weight: 58.05 kg

DRUGS (6)
  1. AMBRISENTAN [Suspect]
     Active Substance: AMBRISENTAN
     Indication: PULMONARY HYPERTENSION
     Dosage: 10 MG, QD
     Route: 048
     Dates: start: 20190621
  2. REMODULIN [Concomitant]
     Active Substance: TREPROSTINIL
  3. MIDODRINE [Concomitant]
     Active Substance: MIDODRINE
  4. SILDENAFIL. [Concomitant]
     Active Substance: SILDENAFIL
  5. FUROSEMIDE. [Concomitant]
     Active Substance: FUROSEMIDE
  6. OXYGEN. [Concomitant]
     Active Substance: OXYGEN

REACTIONS (13)
  - Respiratory arrest [Unknown]
  - Feeling abnormal [Unknown]
  - Chest injury [Unknown]
  - Pulmonary arterial hypertension [Not Recovered/Not Resolved]
  - Weight increased [Unknown]
  - Syncope [Recovered/Resolved]
  - Cardio-respiratory arrest [Unknown]
  - Cardiac arrest [Unknown]
  - Fall [Unknown]
  - Gastrointestinal stoma complication [Not Recovered/Not Resolved]
  - Spinal compression fracture [Unknown]
  - Weight decreased [Not Recovered/Not Resolved]
  - Syncope [Unknown]

NARRATIVE: CASE EVENT DATE: 20190802
